FAERS Safety Report 4343080-4 (Version None)
Quarter: 2004Q2

REPORT INFORMATION
  Report Type: 
  Country: None (occurrence: None)
  Receive Date: 20040416
  Receipt Date: 20040408
  Transmission Date: 20050107
  Serious: Yes (Hospitalization)
  Sender: FDA-Public Use
  Company Number: US-JNJFOC-20040306258

PATIENT
  Age: 71 Year
  Sex: Male

DRUGS (2)
  1. DURAGESIC [Suspect]
     Indication: PAIN
     Dosage: 50 UG/HR, 1 IN 72 HOUR, TRANSDERMAL; SEE IMAGE
     Route: 062
     Dates: start: 20031101, end: 20031201
  2. DURAGESIC [Suspect]
     Indication: PAIN
     Dosage: 50 UG/HR, 1 IN 72 HOUR, TRANSDERMAL; SEE IMAGE
     Route: 062
     Dates: start: 20031201

REACTIONS (9)
  - BACK PAIN [None]
  - BURNING SENSATION [None]
  - CHEST PAIN [None]
  - DRUG INEFFECTIVE [None]
  - DYSPNOEA [None]
  - PAIN [None]
  - PRODUCTIVE COUGH [None]
  - PULMONARY OEDEMA [None]
  - SPUTUM DISCOLOURED [None]
